FAERS Safety Report 24912128 (Version 1)
Quarter: 2025Q1

REPORT INFORMATION
  Report Type: Spontaneous
  Country: US (occurrence: US)
  Receive Date: 20250131
  Receipt Date: 20250131
  Transmission Date: 20250409
  Serious: No
  Sender: SANOFI AVENTIS
  Company Number: US-SANOFI-02392984

PATIENT
  Sex: Female

DRUGS (1)
  1. DUPIXENT [Suspect]
     Active Substance: DUPILUMAB
     Route: 065
     Dates: start: 20250127

REACTIONS (7)
  - Malaise [Unknown]
  - Chest pain [Unknown]
  - Dyspnoea [Unknown]
  - Vocal cord dysfunction [Unknown]
  - Oesophageal spasm [Unknown]
  - Anxiety [Unknown]
  - Dizziness [Unknown]

NARRATIVE: CASE EVENT DATE: 20250127
